FAERS Safety Report 9157249 (Version 2)
Quarter: 2013Q1

REPORT INFORMATION
  Report Type: Spontaneous
  Country: GB (occurrence: GB)
  Receive Date: 20130312
  Receipt Date: 20130320
  Transmission Date: 20140127
  Serious: Yes (Other)
  Sender: FDA-Public Use
  Company Number: GB-BRISTOL-MYERS SQUIBB COMPANY-17358896

PATIENT
  Age: 73 Year
  Sex: Male

DRUGS (1)
  1. IPILIMUMAB [Suspect]
     Indication: METASTATIC MALIGNANT MELANOMA
     Dosage: 260MG
     Route: 042
     Dates: start: 20120927, end: 20121115

REACTIONS (4)
  - Drug-induced liver injury [Recovered/Resolved]
  - Splenomegaly [Unknown]
  - Malignant neoplasm progression [Unknown]
  - Constipation [Unknown]
